FAERS Safety Report 4635159-4 (Version None)
Quarter: 2005Q2

REPORT INFORMATION
  Report Type: 
  Country: None (occurrence: None)
  Receive Date: 20050414
  Receipt Date: 20050407
  Transmission Date: 20051028
  Serious: Yes (Disabling)
  Sender: FDA-Public Use
  Company Number: US-GLAXOSMITHKLINE-A0553424A

PATIENT
  Age: 43 Year
  Sex: Female

DRUGS (2)
  1. WELLBUTRIN XL [Suspect]
     Dosage: 150MG IN THE MORNING
     Route: 048
     Dates: start: 20031201, end: 20041101
  2. PROTONIX [Concomitant]

REACTIONS (7)
  - AGITATION [None]
  - ANOREXIA [None]
  - DISTURBANCE IN ATTENTION [None]
  - DRUG WITHDRAWAL SYNDROME [None]
  - FEELING HOT [None]
  - INSOMNIA [None]
  - NAUSEA [None]
